FAERS Safety Report 5836212-X (Version None)
Quarter: 2008Q3

REPORT INFORMATION
  Report Type: 
  Country: None (occurrence: None)
  Receive Date: 20080805
  Receipt Date: 20080721
  Transmission Date: 20090109
  Serious: Yes (Hospitalization, Other)
  Sender: FDA-Public Use
  Company Number: 031249

PATIENT
  Age: 70 Year
  Sex: Male

DRUGS (3)
  1. METHOTREXATE [Suspect]
     Indication: RHEUMATOID ARTHRITIS
     Dosage: 15 MG, WEEKLY,
     Dates: end: 20040201
  2. VANCOMYCIN [Concomitant]
  3. CIPROFLOXACIN [Concomitant]

REACTIONS (7)
  - CONDITION AGGRAVATED [None]
  - DEVICE RELATED INFECTION [None]
  - IMPAIRED HEALING [None]
  - JOINT TUBERCULOSIS [None]
  - MYCOBACTERIUM CHELONEI INFECTION [None]
  - RHEUMATOID ARTHRITIS [None]
  - STAPHYLOCOCCAL INFECTION [None]
